FAERS Safety Report 14334986 (Version 1)
Quarter: 2017Q4

REPORT INFORMATION
  Report Type: Spontaneous
  Country: DE (occurrence: DE)
  Receive Date: 20171229
  Receipt Date: 20171229
  Transmission Date: 20180321
  Serious: Yes (Hospitalization)
  Sender: FDA-Public Use
  Company Number: DE-PHARMACEUTICS INTERNATIONAL, INC. (PII)-2017PII000012

PATIENT

DRUGS (2)
  1. POTASSIUM CHLORIDE USP [Suspect]
     Active Substance: POTASSIUM CHLORIDE
     Indication: HYPOKALAEMIA
     Dosage: 900 MG, UNK
     Route: 008
  2. ROPIVACAINE [Concomitant]
     Active Substance: ROPIVACAINE
     Indication: PRODUCT USED FOR UNKNOWN INDICATION
     Dosage: 4 ML/HR
     Route: 065

REACTIONS (15)
  - Spinal cord paralysis [Unknown]
  - Hypertension [Unknown]
  - Acute myocardial infarction [Unknown]
  - Respiratory depression [Unknown]
  - Loss of consciousness [Unknown]
  - Abdominal pain upper [Unknown]
  - Quadriplegia [Unknown]
  - Tachycardia [Unknown]
  - Paresis [Unknown]
  - Agitation [Unknown]
  - Pain in extremity [Unknown]
  - Anal pruritus [Unknown]
  - Anxiety [Unknown]
  - Incorrect route of drug administration [Unknown]
  - Paraesthesia [Unknown]
